FAERS Safety Report 15140127 (Version 1)
Quarter: 2018Q3

REPORT INFORMATION
  Report Type: Spontaneous
  Country: TR (occurrence: TR)
  Receive Date: 20180713
  Receipt Date: 20180713
  Transmission Date: 20181010
  Serious: Yes (Hospitalization, Other)
  Sender: FDA-Public Use
  Company Number: TR-ASTELLAS-2018US030781

PATIENT
  Age: 26 Year
  Sex: Female

DRUGS (2)
  1. TACROLIMUS. [Suspect]
     Active Substance: TACROLIMUS
     Indication: LIVER TRANSPLANT
     Route: 065
  2. PREDNISONE. [Concomitant]
     Active Substance: PREDNISONE
     Indication: LIVER TRANSPLANT
     Route: 065

REACTIONS (6)
  - Rubivirus test positive [Recovered/Resolved]
  - Maternal exposure during pregnancy [Unknown]
  - Cephalo-pelvic disproportion [Unknown]
  - Cytomegalovirus test positive [Recovered/Resolved]
  - Abdominal pain [Unknown]
  - Nausea [Unknown]
